FAERS Safety Report 19779811 (Version 1)
Quarter: 2021Q3

REPORT INFORMATION
  Report Type: Spontaneous
  Country: US (occurrence: US)
  Receive Date: 20210902
  Receipt Date: 20210902
  Transmission Date: 20211014
  Serious: Yes (Hospitalization, Other)
  Sender: FDA-Public Use
  Company Number: US-JUBILANT CADISTA PHARMACEUTICALS-2021JUB00252

PATIENT
  Sex: Female
  Weight: 72.56 kg

DRUGS (15)
  1. PREDNISONE. [Suspect]
     Active Substance: PREDNISONE
     Dosage: 5 MG, 1X/DAY
     Route: 048
  2. UNSPECIFIED EYE DROPS [Concomitant]
     Active Substance: UNSPECIFIED INGREDIENT
  3. PREDNISONE. [Suspect]
     Active Substance: PREDNISONE
     Dosage: 40 MG, 1X/DAY
     Route: 048
     Dates: start: 1999, end: 1999
  4. PREDNISONE. [Suspect]
     Active Substance: PREDNISONE
     Dosage: ^LOWER AND LOWER DOSES^
     Route: 048
     Dates: start: 1999, end: 1999
  5. ZOLPIDEM [Concomitant]
     Active Substance: ZOLPIDEM TARTRATE
     Dosage: UNK
  6. LEVALBUTEROL. [Concomitant]
     Active Substance: LEVALBUTEROL
  7. EXCEDRIN [Concomitant]
     Active Substance: ACETAMINOPHEN\ASPIRIN\CAFFEINE
  8. PREDNISONE. [Suspect]
     Active Substance: PREDNISONE
     Dosage: ^PUT BACK ON PREDNISONE,^ ^ANOTHER PREDNISONE REGIMEN^
     Route: 048
  9. BACLOFEN. [Concomitant]
     Active Substance: BACLOFEN
     Dosage: 10 MG, AS NEEDED
  10. PREDNISONE. [Suspect]
     Active Substance: PREDNISONE
     Dosage: 50 MG, 1X/DAY
     Route: 048
     Dates: start: 1999, end: 1999
  11. GABAPENTIN. [Concomitant]
     Active Substance: GABAPENTIN
     Dosage: 100 MG, 1X/DAY
  12. FLONASE [Concomitant]
     Active Substance: FLUTICASONE PROPIONATE
  13. PREDNISONE. [Suspect]
     Active Substance: PREDNISONE
     Indication: ASTHMA
     Dosage: 60 MG, 1X/DAY
     Route: 048
     Dates: start: 199901, end: 1999
  14. FAMOTIDINE. [Concomitant]
     Active Substance: FAMOTIDINE
     Dosage: 20 MG, 1X/DAY IN THE MORNING BEFORE BREAKFAST
  15. ALBUTEROL. [Concomitant]
     Active Substance: ALBUTEROL
     Dosage: UNK, AS NEEDED

REACTIONS (9)
  - Dysphonia [Not Recovered/Not Resolved]
  - Off label use [Not Recovered/Not Resolved]
  - Weight increased [Not Recovered/Not Resolved]
  - Gluten sensitivity [Unknown]
  - Adrenal insufficiency [Unknown]
  - Feeling abnormal [Unknown]
  - Asthma [Unknown]
  - Iron deficiency anaemia [Unknown]
  - Illness [Unknown]

NARRATIVE: CASE EVENT DATE: 1999
